FAERS Safety Report 9475464 (Version 2)
Quarter: 2013Q3

REPORT INFORMATION
  Report Type: Spontaneous
  Country: US (occurrence: None)
  Receive Date: 20130821
  Receipt Date: 20130911
  Transmission Date: 20140515
  Serious: Yes (Hospitalization)
  Sender: FDA-Public Use
  Company Number: QSC-2013-0274

PATIENT
  Age: 60 Year
  Sex: Male

DRUGS (10)
  1. H.P. ACTHAR GEL (ADRENOCORTICOTROPIC HORMONE) GEL FOR INJECTION, 80U/ML [Suspect]
     Indication: POLYMYOSITIS
     Dosage: 80 UNITS, BIW, SUBCUTANEOUS
     Route: 058
     Dates: start: 201306, end: 20130723
  2. HUMALOG (INSULIN LISPRO) [Concomitant]
  3. TRAMADOL (TRAMADOL) [Concomitant]
  4. CARDIAZEM [Concomitant]
  5. WELCHOL [Concomitant]
  6. LISINOPRIL [Concomitant]
  7. DHEA [Concomitant]
  8. CALCIUM WITH VITAMIN D [Concomitant]
  9. PREDNISONE [Concomitant]
  10. NEXIUM (ESOMEPRAZOLE MAGNESIUM) [Concomitant]

REACTIONS (3)
  - Faeces discoloured [None]
  - Abdominal pain [None]
  - Gastrointestinal haemorrhage [None]
